FAERS Safety Report 11557266 (Version 1)
Quarter: 2015Q3

REPORT INFORMATION
  Report Type: Spontaneous
  Country: US (occurrence: US)
  Receive Date: 20150916
  Receipt Date: 20150916
  Transmission Date: 20151125
  Serious: No
  Sender: FDA-Public Use
  Company Number: US-ELI_LILLY_AND_COMPANY-US200807001649

PATIENT
  Age: 67 Year
  Sex: Female

DRUGS (2)
  1. FORTEO [Suspect]
     Active Substance: TERIPARATIDE
     Indication: MULTIPLE FRACTURES
     Dates: start: 20080702
  2. LEVEMIR [Concomitant]
     Active Substance: INSULIN DETEMIR
     Dates: end: 20080707

REACTIONS (4)
  - Vomiting [Recovered/Resolved]
  - Headache [Unknown]
  - Nausea [Unknown]
  - Blood glucose increased [Unknown]

NARRATIVE: CASE EVENT DATE: 20080707
